FAERS Safety Report 5558589-5 (Version None)
Quarter: 2007Q4

REPORT INFORMATION
  Report Type: 
  Country: None (occurrence: None)
  Receive Date: 20071214
  Receipt Date: 20071210
  Transmission Date: 20080405
  Serious: Yes (Death)
  Sender: FDA-Public Use
  Company Number: RS-ABBOTT-07P-303-0427877-00

PATIENT
  Age: 41 Year
  Sex: Male
  Weight: 75 kg

DRUGS (3)
  1. KALETRA [Suspect]
     Indication: HIV INFECTION
     Dosage: 133.3/33.3 MG
     Route: 048
     Dates: start: 20070607, end: 20070628
  2. RITUXIMAB [Suspect]
     Indication: NON-HODGKIN'S LYMPHOMA
     Route: 042
     Dates: start: 20070620, end: 20070620
  3. CHEMOTHERAPY CHOP [Suspect]
     Indication: NON-HODGKIN'S LYMPHOMA
     Route: 042
     Dates: start: 20070620, end: 20070626

REACTIONS (4)
  - BLOOD URIC ACID INCREASED [None]
  - MYALGIA [None]
  - NON-HODGKIN'S LYMPHOMA [None]
  - PAIN [None]
